FAERS Safety Report 12929836 (Version 1)
Quarter: 2016Q4

REPORT INFORMATION
  Report Type: Spontaneous
  Country: US (occurrence: US)
  Receive Date: 20161110
  Receipt Date: 20161110
  Transmission Date: 20170207
  Serious: No
  Sender: FDA-Public Use
  Company Number: US-PFIZER INC-2016518749

PATIENT
  Age: 71 Year
  Sex: Female

DRUGS (2)
  1. IBRANCE [Suspect]
     Active Substance: PALBOCICLIB
     Indication: BREAST CANCER
     Dosage: 125 MG, UNK
     Dates: start: 20161011
  2. IBRANCE [Suspect]
     Active Substance: PALBOCICLIB
     Dosage: UNK, ALTERNATE DAY (REDUCED DOSE)

REACTIONS (2)
  - Dry skin [Unknown]
  - Skin exfoliation [Unknown]
